FAERS Safety Report 4625101-4 (Version None)
Quarter: 2005Q1

REPORT INFORMATION
  Report Type: 
  Country: None (occurrence: None)
  Receive Date: 20050325
  Receipt Date: 20050121
  Transmission Date: 20050727
  Serious: No
  Sender: FDA-Public Use
  Company Number: USA050189028

PATIENT
  Age: 58 Year
  Sex: Female

DRUGS (8)
  1. FORTEO [Suspect]
     Indication: OSTEOPOROSIS
     Dates: start: 20041101
  2. BEXTRA [Concomitant]
  3. ASACOL [Concomitant]
  4. PREVACID [Concomitant]
  5. TRAMADOL [Concomitant]
  6. FOLIC ACID [Concomitant]
  7. PREDNISONE [Concomitant]
  8. AMITRIPTYLINE HCL TAB [Concomitant]

REACTIONS (2)
  - CONTUSION [None]
  - PAIN [None]
